FAERS Safety Report 5633847-4 (Version None)
Quarter: 2008Q1

REPORT INFORMATION
  Report Type: 
  Country: None (occurrence: None)
  Receive Date: 20080131
  Receipt Date: 20070319
  Transmission Date: 20080703
  Serious: Yes (Hospitalization)
  Sender: FDA-Public Use
  Company Number: 154117USA

PATIENT
  Sex: Female

DRUGS (1)
  1. COPAXONE [Suspect]

REACTIONS (4)
  - DYSSTASIA [None]
  - GAIT DISTURBANCE [None]
  - MUSCULAR WEAKNESS [None]
  - UVEITIS [None]
